FAERS Safety Report 13819116 (Version 3)
Quarter: 2019Q3

REPORT INFORMATION
  Report Type: Spontaneous
  Country: TW (occurrence: TW)
  Receive Date: 20170801
  Receipt Date: 20190920
  Transmission Date: 20191004
  Serious: Yes (Hospitalization)
  Sender: FDA-Public Use
  Company Number: TW-JNJFOC-20170719845

PATIENT
  Age: 78 Year
  Sex: Female

DRUGS (2)
  1. THROMBIN [Suspect]
     Active Substance: THROMBIN
     Indication: ENTEROCUTANEOUS FISTULA
     Route: 061
  2. HUMAN CLOTTABLE PROTEIN/HUMAN THROMBIN [Suspect]
     Active Substance: FIBRINOGEN HUMAN\THROMBIN HUMAN
     Indication: ENTEROCUTANEOUS FISTULA
     Route: 061

REACTIONS (4)
  - Off label use [Recovered/Resolved]
  - Drug ineffective for unapproved indication [Recovered/Resolved]
  - Fistula discharge [Recovered/Resolved]
  - Product use in unapproved indication [Recovered/Resolved]
